FAERS Safety Report 10237789 (Version 1)
Quarter: 2014Q2

REPORT INFORMATION
  Report Type: Spontaneous
  Country: US (occurrence: None)
  Receive Date: 20140612
  Receipt Date: 20140612
  Transmission Date: 20141212
  Serious: No
  Sender: FDA-Public Use
  Company Number: None

PATIENT
  Sex: Male

DRUGS (1)
  1. CLOTRIMAZOLE-BETAMETHASONE [Suspect]

REACTIONS (9)
  - Folliculitis [None]
  - Skin exfoliation [None]
  - Erythema [None]
  - Blister [None]
  - Wound secretion [None]
  - Skin burning sensation [None]
  - Skin irritation [None]
  - Pain [None]
  - Scar [None]
